FAERS Safety Report 8544548-7 (Version None)
Quarter: 2012Q3

REPORT INFORMATION
  Report Type: 
  Country: None (occurrence: None)
  Receive Date: 20120727
  Receipt Date: 20120427
  Transmission Date: 20120928
  Serious: No
  Sender: FDA-Public Use
  Company Number: US-ASTRAZENECA-2012SE27872

PATIENT
  Sex: Male

DRUGS (3)
  1. RISPERIDONE [Suspect]
     Route: 048
  2. SEROQUEL XR [Suspect]
     Route: 048
     Dates: start: 20120101, end: 20120101
  3. RISPERIDONE [Suspect]
     Route: 048

REACTIONS (4)
  - CHEST DISCOMFORT [None]
  - DIZZINESS [None]
  - BLOOD PRESSURE DECREASED [None]
  - HEADACHE [None]
